FAERS Safety Report 18324513 (Version 1)
Quarter: 2020Q3

REPORT INFORMATION
  Report Type: Spontaneous
  Country: GB (occurrence: GB)
  Receive Date: 20200929
  Receipt Date: 20200929
  Transmission Date: 20201103
  Serious: Yes (Hospitalization, Disabling)
  Sender: FDA-Public Use
  Company Number: NVSC2020GB258955

PATIENT
  Age: 68 Year
  Sex: Female
  Weight: 95 kg

DRUGS (1)
  1. PREDNISOLONE. [Suspect]
     Active Substance: PREDNISOLONE
     Indication: SUDDEN HEARING LOSS
     Dosage: 60 MG
     Route: 048
     Dates: start: 20200714, end: 20200714

REACTIONS (10)
  - Pain [Unknown]
  - Headache [Unknown]
  - Chest pain [Recovered/Resolved]
  - Prinzmetal angina [Recovered/Resolved]
  - Blood glucose increased [Unknown]
  - Blood pressure increased [Unknown]
  - Myocardial necrosis marker increased [Recovered/Resolved]
  - Condition aggravated [Unknown]
  - Muscle spasms [Unknown]
  - Migraine with aura [Unknown]

NARRATIVE: CASE EVENT DATE: 20200714
